FAERS Safety Report 24700980 (Version 1)
Quarter: 2024Q4

REPORT INFORMATION
  Report Type: Report from Study
  Country: US (occurrence: US)
  Receive Date: 20241205
  Receipt Date: 20241205
  Transmission Date: 20250115
  Serious: Yes (Hospitalization)
  Sender: MYLAN
  Company Number: US-MYLANLABS-2024M1108195

PATIENT
  Sex: Male

DRUGS (6)
  1. DOXORUBICIN [Suspect]
     Active Substance: DOXORUBICIN
     Indication: Testicular yolk sac tumour
     Dosage: 30 MILLIGRAM/SQ. METER, OVER 15?MINUTES; AS A PART OF ATP REGIMEN
     Route: 042
  2. DOXORUBICIN [Suspect]
     Active Substance: DOXORUBICIN
     Indication: Choriocarcinoma
  3. CISPLATIN [Suspect]
     Active Substance: CISPLATIN
     Indication: Testicular yolk sac tumour
     Dosage: 30 MILLIGRAM/SQ. METER, Q2H, OVER 2 HOURS; AS A PART OF ATP REGIMEN
     Route: 042
  4. CISPLATIN [Suspect]
     Active Substance: CISPLATIN
     Indication: Choriocarcinoma
  5. PACLITAXEL [Suspect]
     Active Substance: PACLITAXEL
     Indication: Testicular yolk sac tumour
     Dosage: 100 MILLIGRAM/SQ. METER, QH,  OVER 1 HOUR; AS A PART OF ATP REGIMEN
     Route: 042
  6. PACLITAXEL [Suspect]
     Active Substance: PACLITAXEL
     Indication: Choriocarcinoma

REACTIONS (4)
  - Dyspnoea [Unknown]
  - Respiratory failure [Unknown]
  - Pneumocystis jirovecii pneumonia [Unknown]
  - Thrombocytopenia [Unknown]
